FAERS Safety Report 18395286 (Version 1)
Quarter: 2020Q4

REPORT INFORMATION
  Report Type: Other
  Country: None (occurrence: US)
  Receive Date: 20201017
  Receipt Date: 20201017
  Transmission Date: 20210114
  Serious: Yes (Other)
  Sender: FDA-Public Use
  Company Number: US-GUTHY-RENKER, LLC-2092881

PATIENT
  Age: 72 Year
  Sex: Female

DRUGS (3)
  1. MEANINGFUL BEAUTY CINDY CRAWFORD SKIN BRIGHTENING DECOLLETE AND NECK TREATMENT SPF 15 [Suspect]
     Active Substance: AVOBENZONE\OCTINOXATE\OCTISALATE\OXYBENZONE
     Dates: start: 20200301, end: 20200301
  2. MEANINGFUL BEAUTY DARK SPOT CORRECTING TREATMENT [Suspect]
     Active Substance: HYDROQUINONE
     Dates: start: 20200301, end: 20200301
  3. MEANINGFUL BEAUTY CINDY CRAWFORD ANTIOXIDANT SPF 20 UVA/UVB [Suspect]
     Active Substance: AVOBENZONE\OCTINOXATE\OCTISALATE\OXYBENZONE
     Dates: start: 20200301, end: 20200301

REACTIONS (5)
  - Diarrhoea [None]
  - Peripheral swelling [None]
  - Vomiting [None]
  - Nausea [None]
  - Malaise [Recovered/Resolved]

NARRATIVE: CASE EVENT DATE: 20200301
